FAERS Safety Report 20365287 (Version 2)
Quarter: 2022Q1

REPORT INFORMATION
  Report Type: Report from Study
  Country: US (occurrence: US)
  Receive Date: 20220122
  Receipt Date: 20220127
  Transmission Date: 20220423
  Serious: No
  Sender: FDA-Public Use
  Company Number: US-NOVARTISTESTPH-NVSC2022US013294

PATIENT
  Sex: Male

DRUGS (1)
  1. ENTRESTO [Suspect]
     Active Substance: SACUBITRIL\VALSARTAN
     Indication: Product used for unknown indication
     Dosage: 24/26 MG( TWICE A DAY)
     Route: 048
     Dates: start: 20220105

REACTIONS (3)
  - Weight increased [Unknown]
  - Hypoacusis [Unknown]
  - Blood pressure decreased [Recovered/Resolved]
